FAERS Safety Report 8391259-7 (Version None)
Quarter: 2012Q2

REPORT INFORMATION
  Report Type: 
  Country: None (occurrence: None)
  Receive Date: 20120529
  Receipt Date: 20120516
  Transmission Date: 20120825
  Serious: No
  Sender: FDA-Public Use
  Company Number: IN-NOVOPROD-351354

PATIENT
  Age: 54 Year
  Sex: Female
  Weight: 70.1 kg

DRUGS (1)
  1. VICTOZA [Suspect]
     Indication: TYPE 2 DIABETES MELLITUS
     Dosage: 1.2 MG, QD
     Route: 058
     Dates: start: 20111029, end: 20120123

REACTIONS (1)
  - FREQUENT BOWEL MOVEMENTS [None]
